FAERS Safety Report 23133406 (Version 2)
Quarter: 2023Q4

REPORT INFORMATION
  Report Type: Spontaneous
  Country: US (occurrence: US)
  Receive Date: 20231101
  Receipt Date: 20231106
  Transmission Date: 20240110
  Serious: No
  Sender: FDA-Public Use
  Company Number: US-ABBVIE-5476634

PATIENT
  Age: 59 Year
  Sex: Female
  Weight: 61.234 kg

DRUGS (5)
  1. SYNTHROID [Suspect]
     Active Substance: LEVOTHYROXINE SODIUM
     Indication: Hypothyroidism
     Dosage: UNKNOWN
     Route: 048
     Dates: start: 20231026
  2. SYNTHROID [Suspect]
     Active Substance: LEVOTHYROXINE SODIUM
     Indication: Hypothyroidism
     Route: 048
     Dates: start: 202310
  3. SYNTHROID [Suspect]
     Active Substance: LEVOTHYROXINE SODIUM
     Indication: Hypothyroidism
     Dosage: FORM STRENGTH: 25 MICROGRAM
     Route: 048
     Dates: start: 20231027, end: 20231028
  4. SYNTHROID [Suspect]
     Active Substance: LEVOTHYROXINE SODIUM
     Indication: Hypothyroidism
     Dosage: FORM STRENGTH: 25 MICROGRAM
     Route: 048
     Dates: start: 20231010, end: 202310
  5. OMEPRAZOLE [Suspect]
     Active Substance: OMEPRAZOLE
     Indication: Gastritis
     Route: 065

REACTIONS (8)
  - Dry throat [Not Recovered/Not Resolved]
  - Oropharyngeal pain [Not Recovered/Not Resolved]
  - Nasopharyngitis [Unknown]
  - Hypotension [Recovered/Resolved]
  - Abdominal pain upper [Unknown]
  - Feeling cold [Recovered/Resolved]
  - Paraesthesia oral [Not Recovered/Not Resolved]
  - Mouth injury [Not Recovered/Not Resolved]

NARRATIVE: CASE EVENT DATE: 20231001
